FAERS Safety Report 4367774-X (Version None)
Quarter: 2004Q2

REPORT INFORMATION
  Report Type: 
  Country: None (occurrence: None)
  Receive Date: 20040601
  Receipt Date: 20040521
  Transmission Date: 20050107
  Serious: Yes (Hospitalization)
  Sender: FDA-Public Use
  Company Number: US-AMGEN-US077863

PATIENT
  Sex: Female

DRUGS (4)
  1. NEULASTA [Suspect]
     Indication: CHEMOTHERAPY
  2. DEXAMETHASONE [Suspect]
     Dates: start: 20030630
  3. PROCRIT [Concomitant]
     Dates: start: 20030908
  4. AMBIEN [Concomitant]
     Dates: start: 20030626

REACTIONS (12)
  - ALANINE AMINOTRANSFERASE INCREASED [None]
  - ARTHRALGIA [None]
  - ASPARTATE AMINOTRANSFERASE INCREASED [None]
  - BONE PAIN [None]
  - DEHYDRATION [None]
  - GASTROENTERITIS [None]
  - HEADACHE [None]
  - LEUKOCYTOSIS [None]
  - MIGRAINE [None]
  - MYALGIA [None]
  - NAUSEA [None]
  - VOMITING [None]
